FAERS Safety Report 7037260-7 (Version None)
Quarter: 2010Q4

REPORT INFORMATION
  Report Type: 
  Country: None (occurrence: None)
  Receive Date: 20101011
  Receipt Date: 20100929
  Transmission Date: 20110411
  Serious: Yes (Other)
  Sender: FDA-Public Use
  Company Number: US-PFIZER INC-2010123691

PATIENT
  Sex: Male

DRUGS (1)
  1. SUTENT [Suspect]
     Indication: RENAL CELL CARCINOMA
     Dosage: 37.5 MG, 1X/DAY, CYCLE 4 WEEKS ON AND 2 OFF
     Route: 048
     Dates: start: 20100908

REACTIONS (2)
  - HYPERTENSION [None]
  - MUSCLE SPASMS [None]
